FAERS Safety Report 5735578-9 (Version None)
Quarter: 2008Q2

REPORT INFORMATION
  Report Type: 
  Country: None (occurrence: None)
  Receive Date: 20080512
  Receipt Date: 20080502
  Transmission Date: 20081010
  Serious: Yes (Hospitalization)
  Sender: FDA-Public Use
  Company Number: US-AMGEN-QUU273900

PATIENT
  Sex: Female

DRUGS (4)
  1. ENBREL [Suspect]
     Indication: RHEUMATOID ARTHRITIS
     Route: 058
     Dates: start: 20041101
  2. ENBREL [Suspect]
     Indication: PSORIATIC ARTHROPATHY
  3. METHOTREXATE [Concomitant]
     Route: 048
     Dates: start: 19900101
  4. PLAQUENIL [Concomitant]
     Route: 048

REACTIONS (8)
  - ARRHYTHMIA [None]
  - CARDIAC FAILURE CONGESTIVE [None]
  - HYPOTENSION [None]
  - OVARIAN CANCER [None]
  - PLEURAL EFFUSION [None]
  - POST PROCEDURAL INFECTION [None]
  - RENAL IMPAIRMENT [None]
  - WOUND DEHISCENCE [None]
